FAERS Safety Report 8570091-5 (Version None)
Quarter: 2012Q3

REPORT INFORMATION
  Report Type: 
  Country: None (occurrence: None)
  Receive Date: 20120803
  Receipt Date: 20120726
  Transmission Date: 20120928
  Serious: Yes (Other)
  Sender: FDA-Public Use
  Company Number: ES-ABBOTT-12P-144-0956387-02

PATIENT
  Age: 59 Year
  Sex: Male

DRUGS (13)
  1. AZATHIOPRINE [Concomitant]
     Indication: CROHN'S DISEASE
  2. INFLIXIMAB [Concomitant]
     Dates: end: 20100601
  3. PROPRANOLOL HYDROCHLORIDE [Concomitant]
     Indication: HEADACHE
     Dates: start: 20100401
  4. HUMIRA [Suspect]
     Indication: CROHN'S DISEASE
     Dosage: BASELINE
     Route: 058
     Dates: start: 20070907, end: 20070907
  5. INFLIXIMAB [Concomitant]
     Dosage: DAY 15
  6. HUMIRA [Suspect]
     Route: 058
     Dates: end: 20090630
  7. CERTOLIZUMAB [Concomitant]
     Indication: PROPHYLAXIS
     Dosage: 1 MONTH SCHEDULE
     Dates: start: 20110427, end: 20110501
  8. HUMIRA [Suspect]
     Dosage: WEEK 2
     Route: 058
  9. INFLIXIMAB [Concomitant]
     Indication: DRUG INEFFECTIVE
     Dosage: DAY 0
     Dates: start: 20090710, end: 20090710
  10. CERTOLIZUMAB [Concomitant]
  11. MERCAPTOPURINE [Concomitant]
     Indication: CROHN'S DISEASE
  12. NATALIZUMAB [Concomitant]
     Indication: DRUG INEFFECTIVE
     Dates: start: 20100901, end: 20110101
  13. MESALAZINA [Concomitant]
     Indication: CROHN'S DISEASE
     Dosage: DURATION 10 YRS, 11 MTHS

REACTIONS (1)
  - POSTOPERATIVE HERNIA [None]
